FAERS Safety Report 10983500 (Version 1)
Quarter: 2015Q2

REPORT INFORMATION
  Report Type: Spontaneous
  Country: US (occurrence: US)
  Receive Date: 20150403
  Receipt Date: 20150403
  Transmission Date: 20150821
  Serious: Yes (Other)
  Sender: FDA-Public Use
  Company Number: US-PERRIGO-15US003383

PATIENT
  Age: 51 Year
  Sex: Male
  Weight: 81.63 kg

DRUGS (2)
  1. ASPIRIN 325MG COATED 416 [Suspect]
     Active Substance: ASPIRIN
     Dosage: 625 MG, SINGLE
     Route: 048
     Dates: start: 201503, end: 201503
  2. ASPIRIN 325MG COATED 416 [Suspect]
     Active Substance: ASPIRIN
     Indication: BACK PAIN
     Dosage: 325 MG, SINGLE
     Route: 048
     Dates: start: 201501, end: 201501

REACTIONS (9)
  - Hyperhidrosis [Recovered/Resolved]
  - Feeling hot [Recovered/Resolved]
  - Hypoaesthesia [Recovered/Resolved]
  - Dizziness [Recovered/Resolved]
  - Asthenia [Recovered/Resolved]
  - Fall [Recovered/Resolved]
  - Vision blurred [Recovered/Resolved]
  - Lethargy [Recovered/Resolved]
  - Loss of consciousness [Recovered/Resolved]

NARRATIVE: CASE EVENT DATE: 201501
